FAERS Safety Report 9959114 (Version 1)
Quarter: 2014Q1

REPORT INFORMATION
  Report Type: Report from Study
  Country: US (occurrence: US)
  Receive Date: 20140305
  Receipt Date: 20140305
  Transmission Date: 20141002
  Serious: No
  Sender: FDA-Public Use
  Company Number: US-ABBVIE-13P-163-1106599-00

PATIENT
  Age: 18 Year
  Sex: Female

DRUGS (10)
  1. HUMIRA [Suspect]
     Indication: COLITIS ULCERATIVE
     Dates: start: 20130420
  2. FLUOXETINE [Concomitant]
     Indication: DEPRESSION
  3. FLUOXETINE [Concomitant]
     Indication: ANXIETY
  4. FERROUS SULFATE [Concomitant]
     Indication: SUPPLEMENTATION THERAPY
  5. BIOTIN [Concomitant]
     Indication: PRODUCT USED FOR UNKNOWN INDICATION
     Dosage: OVER THE COUNTER
  6. PRENATAL VITAMIN [Concomitant]
     Indication: SUPPLEMENTATION THERAPY
  7. BIRTH CONTROL PILL [Concomitant]
     Indication: PRODUCT USED FOR UNKNOWN INDICATION
  8. MESALAMINE ENEMA [Concomitant]
     Indication: COLITIS ULCERATIVE
     Dosage: 1 A DAY
  9. APRISO [Concomitant]
     Indication: COLITIS ULCERATIVE
  10. CANASA RECTAL SUPPOSITORY [Concomitant]
     Indication: COLITIS ULCERATIVE

REACTIONS (1)
  - Injection site urticaria [Recovered/Resolved]
